FAERS Safety Report 9988049 (Version 1)
Quarter: 2014Q1

REPORT INFORMATION
  Report Type: Report from Study
  Country: SG (occurrence: SG)
  Receive Date: 20140308
  Receipt Date: 20140308
  Transmission Date: 20141002
  Serious: Yes (Death)
  Sender: FDA-Public Use
  Company Number: SG-ROCHE-1356959

PATIENT
  Sex: 0

DRUGS (4)
  1. TRASTUZUMAB [Suspect]
     Indication: GASTRIC CANCER
     Dosage: LOADING DOSE
     Route: 065
  2. TRASTUZUMAB [Suspect]
     Dosage: ON DAY 1 OF EACH CYCLE
     Route: 065
  3. CISPLATIN [Suspect]
     Indication: GASTRIC CANCER
     Dosage: ON DAY 1 OF EACH CYCLE
     Route: 065
  4. TS-1 [Suspect]
     Indication: GASTRIC CANCER
     Dosage: DOSING BASED ON BSA FOR 14 DAYS
     Route: 048

REACTIONS (1)
  - Neutropenic sepsis [Fatal]
